FAERS Safety Report 14988275 (Version 1)
Quarter: 2018Q2

REPORT INFORMATION
  Report Type: Spontaneous
  Country: GB (occurrence: GB)
  Receive Date: 20180608
  Receipt Date: 20180608
  Transmission Date: 20180711
  Serious: Yes (Other)
  Sender: FDA-Public Use
  Company Number: GB-BAYER-2018-103053

PATIENT
  Age: 48 Year
  Sex: Female

DRUGS (1)
  1. MIRENA [Suspect]
     Active Substance: LEVONORGESTREL
     Indication: CONTRACEPTION
     Dosage: 20 MCG/24HR, CONT
     Route: 015
     Dates: start: 20160606, end: 20180316

REACTIONS (5)
  - Haemorrhage [Recovering/Resolving]
  - Pain [Recovering/Resolving]
  - Infection [Recovering/Resolving]
  - Medication error [None]
  - Device dislocation [Unknown]

NARRATIVE: CASE EVENT DATE: 201612
